FAERS Safety Report 8085822-0 (Version None)
Quarter: 2012Q1

REPORT INFORMATION
  Report Type: 
  Country: None (occurrence: None)
  Receive Date: 20120128
  Receipt Date: 20110607
  Transmission Date: 20120608
  Serious: No
  Sender: FDA-Public Use
  Company Number: US-ABBOTT-11P-163-0731351-00

PATIENT
  Sex: Female
  Weight: 63.56 kg

DRUGS (20)
  1. CYTOMEL [Concomitant]
     Indication: HYPOTHYROIDISM
  2. MULTI-VITAMIN [Concomitant]
     Indication: VITAMIN SUPPLEMENTATION
  3. IRON [Concomitant]
     Indication: MINERAL SUPPLEMENTATION
  4. VITAMIN D [Concomitant]
     Indication: VITAMIN SUPPLEMENTATION
  5. METHOTREXATE [Concomitant]
     Indication: PSORIATIC ARTHROPATHY
  6. METHOTREXATE [Concomitant]
  7. HUMIRA [Suspect]
     Dates: start: 20110401
  8. SERTRALINE HYDROCHLORIDE [Concomitant]
     Indication: DEPRESSION
  9. FLUTICASONE PROPIONATE [Concomitant]
     Indication: FACIAL PAIN
  10. VITAMIN B-12 [Concomitant]
     Indication: VITAMIN B12 DECREASED
  11. HUMIRA [Suspect]
     Indication: PSORIATIC ARTHROPATHY
     Dates: start: 20100901, end: 20110401
  12. ATIVAN [Concomitant]
     Indication: ANXIETY
     Dosage: PRN AT HS 1-2 MG:  1 IN 1 DAYS
  13. ASCORBIC ACID [Concomitant]
     Indication: VITAMIN SUPPLEMENTATION
  14. SERTRALINE HYDROCHLORIDE [Concomitant]
     Indication: ANXIETY
  15. DR. RON'S ULTRA PURE ADRENAL SUPPLEMENT [Concomitant]
     Indication: SUPPLEMENTATION THERAPY
     Dosage: 500 MG IN THE MORNING
  16. ATIVAN [Concomitant]
     Indication: INSOMNIA
  17. FLUTICASONE PROPIONATE [Concomitant]
     Indication: UPPER-AIRWAY COUGH SYNDROME
     Route: 045
  18. ADDERALL 5 [Concomitant]
     Indication: FEELING ABNORMAL
  19. CALCIUM [Concomitant]
     Indication: MINERAL SUPPLEMENTATION
  20. SYNTHROID [Concomitant]
     Indication: HYPOTHYROIDISM

REACTIONS (12)
  - FATIGUE [None]
  - FEELING ABNORMAL [None]
  - JOINT SWELLING [None]
  - BACK DISORDER [None]
  - ARTHROPATHY [None]
  - PAIN [None]
  - HYPOREFLEXIA [None]
  - DRUG INEFFECTIVE [None]
  - ARTHRALGIA [None]
  - NECK PAIN [None]
  - DECREASED ACTIVITY [None]
  - MUSCULOSKELETAL PAIN [None]
